FAERS Safety Report 5661314-0 (Version None)
Quarter: 2008Q1

REPORT INFORMATION
  Report Type: 
  Country: None (occurrence: None)
  Receive Date: 20080312
  Receipt Date: 20080306
  Transmission Date: 20080703
  Serious: Yes (Other)
  Sender: FDA-Public Use
  Company Number: US-JNJFOC-20080302096

PATIENT
  Sex: Female

DRUGS (2)
  1. INVEGA [Suspect]
  2. INVEGA [Suspect]
     Indication: SCHIZOPHRENIA

REACTIONS (2)
  - BRADYCARDIA [None]
  - SYNCOPE [None]
